FAERS Safety Report 25519105 (Version 5)
Quarter: 2025Q3

REPORT INFORMATION
  Report Type: Report from Study
  Country: CA (occurrence: CA)
  Receive Date: 20250704
  Receipt Date: 20250926
  Transmission Date: 20251021
  Serious: Yes (Other)
  Sender: TAKEDA
  Company Number: CA-TAKEDA-2025TUS058410

PATIENT
  Age: 76 Year
  Sex: Female

DRUGS (3)
  1. VEDOLIZUMAB [Suspect]
     Active Substance: VEDOLIZUMAB
     Indication: Crohn^s disease
  2. VEDOLIZUMAB [Suspect]
     Active Substance: VEDOLIZUMAB
     Indication: Crohn^s disease
     Dosage: 108 MILLIGRAM, Q2WEEKS
  3. MESALAMINE [Concomitant]
     Active Substance: MESALAMINE

REACTIONS (16)
  - Anal abscess [Unknown]
  - Rectal haemorrhage [Recovering/Resolving]
  - Increased tendency to bruise [Unknown]
  - Infrequent bowel movements [Unknown]
  - Respiratory tract congestion [Unknown]
  - Faeces discoloured [Unknown]
  - Diarrhoea [Unknown]
  - Weight increased [Unknown]
  - Bowel movement irregularity [Unknown]
  - Abnormal faeces [Unknown]
  - Gastrointestinal sounds abnormal [Unknown]
  - Drug ineffective [Unknown]
  - Rectal discharge [Unknown]
  - Asthenia [Unknown]
  - Abdominal distension [Unknown]
  - Flatulence [Unknown]

NARRATIVE: CASE EVENT DATE: 20250629
